FAERS Safety Report 4363296-0 (Version None)
Quarter: 2004Q2

REPORT INFORMATION
  Report Type: 
  Country: None (occurrence: None)
  Receive Date: 20040518
  Receipt Date: 20040506
  Transmission Date: 20050107
  Serious: Yes (Hospitalization, Other)
  Sender: FDA-Public Use
  Company Number: 062-20785-04050285

PATIENT
  Age: 70 Year
  Sex: Male

DRUGS (4)
  1. THALIDOMIDE          (THALIDOMIDE) [Suspect]
     Indication: MULTIPLE MYELOMA
     Dosage: 400 MG, QD, ORAL
     Route: 048
     Dates: start: 20030701, end: 20040515
  2. DIOVAN [Concomitant]
  3. ALLOPURINOL [Concomitant]
  4. METOPROLOL (METOPROLOL) [Concomitant]

REACTIONS (3)
  - BLOOD CREATININE INCREASED [None]
  - HYPERKALAEMIA [None]
  - RENAL CELL CARCINOMA STAGE UNSPECIFIED [None]
